FAERS Safety Report 25587590 (Version 2)
Quarter: 2025Q3

REPORT INFORMATION
  Report Type: Spontaneous
  Country: EU (occurrence: EU)
  Receive Date: 20250721
  Receipt Date: 20250904
  Transmission Date: 20251020
  Serious: Yes (Other)
  Sender: BAUSCH AND LOMB
  Company Number: EU-NORGINE-LIMITED-NOR202502080

PATIENT
  Age: 69 Year
  Sex: Male
  Weight: 74 kg

DRUGS (8)
  1. PLENVU [Suspect]
     Active Substance: ASCORBIC ACID\POLYETHYLENE GLYCOL 3350\POTASSIUM CHLORIDE\SODIUM ASCORBATE\SODIUM CHLORIDE\SODIUM SU
     Indication: Bowel preparation
     Route: 048
     Dates: start: 20250209, end: 20250209
  2. PLENVU [Suspect]
     Active Substance: ASCORBIC ACID\POLYETHYLENE GLYCOL 3350\POTASSIUM CHLORIDE\SODIUM ASCORBATE\SODIUM CHLORIDE\SODIUM SU
     Route: 048
     Dates: start: 20250210, end: 20250210
  3. PROPOFOL [Suspect]
     Active Substance: PROPOFOL
     Indication: Local anaesthesia
     Route: 065
     Dates: start: 202502
  4. METEOSPASMYL [Concomitant]
     Indication: Product used for unknown indication
     Dosage: 1 DOSAGE FORM, QD, BEFORE STARTING THE SECOND DOSE OF PLENVU
     Route: 065
     Dates: start: 20250210, end: 20250210
  5. METEOSPASMYL [Concomitant]
     Dosage: 1 DOSAGE FORM QD, TABLET BEFORE BEDTIME
     Route: 065
     Dates: start: 20250209, end: 20250209
  6. IRBESARTAN [Concomitant]
     Active Substance: IRBESARTAN
     Indication: Hypertension
     Dosage: 150 MG, Q D (1-0-0) - NOT TAKEN IN THE MORNING LOCAL ANESTHESIA
     Route: 048
  7. SOTALOL HYDROCHLORIDE [Concomitant]
     Active Substance: SOTALOL HYDROCHLORIDE
     Indication: Product used for unknown indication
     Route: 048
  8. ELIQUIS [Concomitant]
     Active Substance: APIXABAN
     Indication: Product used for unknown indication
     Route: 048

REACTIONS (2)
  - Hypotension [Recovered/Resolved]
  - Thirst [Unknown]

NARRATIVE: CASE EVENT DATE: 20250201
